FAERS Safety Report 9820900 (Version 2)
Quarter: 2014Q1

REPORT INFORMATION
  Report Type: Spontaneous
  Country: US (occurrence: US)
  Receive Date: 20140116
  Receipt Date: 20140130
  Transmission Date: 20141002
  Serious: No
  Sender: FDA-Public Use
  Company Number: US-PFIZER INC-2014011835

PATIENT
  Age: 33 Year
  Sex: Female
  Weight: 107 kg

DRUGS (1)
  1. DEPO-PROVERA [Suspect]
     Indication: CONTRACEPTION
     Dosage: UNK
     Dates: start: 201306, end: 201309

REACTIONS (1)
  - Amenorrhoea [Not Recovered/Not Resolved]
